FAERS Safety Report 4383924-3 (Version None)
Quarter: 2004Q2

REPORT INFORMATION
  Report Type: 
  Country: None (occurrence: None)
  Receive Date: 20040621
  Receipt Date: 20040609
  Transmission Date: 20050107
  Serious: Yes (Hospitalization)
  Sender: FDA-Public Use
  Company Number: FR-JNJFOC-20040602740

PATIENT
  Age: 78 Year
  Sex: Male

DRUGS (1)
  1. RISPERDAL [Suspect]
     Indication: DELUSION
     Dosage: 4 MG, IN 1 DAY, ORAL
     Route: 048
     Dates: start: 20040601

REACTIONS (5)
  - ATRIAL FIBRILLATION [None]
  - CIRCULATORY COLLAPSE [None]
  - TRICUSPID VALVE INCOMPETENCE [None]
  - VENTRICULAR EXTRASYSTOLES [None]
  - VENTRICULAR HYPERTROPHY [None]
